FAERS Safety Report 5296041-5 (Version None)
Quarter: 2007Q2

REPORT INFORMATION
  Report Type: 
  Country: None (occurrence: None)
  Receive Date: 20070406
  Receipt Date: 20070323
  Transmission Date: 20071010
  Serious: Yes (Hospitalization)
  Sender: FDA-Public Use
  Company Number: 238843

PATIENT
  Age: 63 Year
  Sex: Female

DRUGS (1)
  1. XOLAIR [Suspect]
     Indication: ASTHMA
     Dosage: 160 MG, UNK, SUBCUTANEOUS
     Route: 058
     Dates: start: 20060922

REACTIONS (1)
  - PERICARDIAL EFFUSION [None]
